FAERS Safety Report 23507488 (Version 1)
Quarter: 2024Q1

REPORT INFORMATION
  Report Type: Spontaneous
  Country: US (occurrence: US)
  Receive Date: 20240209
  Receipt Date: 20240209
  Transmission Date: 20240410
  Serious: No
  Sender: FDA-Public Use
  Company Number: US-SA-SAC20240206001106

PATIENT
  Sex: Female

DRUGS (7)
  1. DUPIXENT [Suspect]
     Active Substance: DUPILUMAB
     Indication: Dermatitis atopic
     Dosage: 300 MG, QOW
     Route: 058
     Dates: start: 20231228
  2. ADBRY [Concomitant]
     Active Substance: TRALOKINUMAB-LDRM
  3. CALCIUM [Concomitant]
     Active Substance: CALCIUM
  4. PHENTERMINE [Concomitant]
     Active Substance: PHENTERMINE
  5. REMERON [Concomitant]
     Active Substance: MIRTAZAPINE
  6. TYLENOL [Concomitant]
     Active Substance: ACETAMINOPHEN
  7. VITAMINS NOS [Concomitant]
     Active Substance: VITAMINS

REACTIONS (3)
  - Sleep disorder due to a general medical condition [Unknown]
  - Injection site reaction [Unknown]
  - Drug ineffective [Unknown]
